FAERS Safety Report 13433199 (Version 2)
Quarter: 2017Q3

REPORT INFORMATION
  Report Type: Report from Study
  Country: IL (occurrence: IL)
  Receive Date: 20170412
  Receipt Date: 20170823
  Transmission Date: 20171127
  Serious: Yes (Hospitalization)
  Sender: FDA-Public Use
  Company Number: IL-ACTELION-A-US2017-152418

PATIENT
  Age: 72 Year
  Sex: Male

DRUGS (1)
  1. VENTAVIS [Suspect]
     Active Substance: ILOPROST
     Indication: PULMONARY HYPERTENSION
     Dosage: UNK
     Route: 055
     Dates: start: 20161222

REACTIONS (5)
  - Condition aggravated [Unknown]
  - Asthenia [Unknown]
  - Oedema peripheral [Unknown]
  - Dyspnoea [Unknown]
  - Pulmonary congestion [Unknown]
